FAERS Safety Report 5413617-2 (Version None)
Quarter: 2007Q3

REPORT INFORMATION
  Report Type: 
  Country: None (occurrence: None)
  Receive Date: 20070814
  Receipt Date: 20070116
  Transmission Date: 20080115
  Serious: No
  Sender: FDA-Public Use
  Company Number: US-BRISTOL-MYERS SQUIBB COMPANY-13643317

PATIENT
  Age: 71 Year
  Sex: Male
  Weight: 84 kg

DRUGS (10)
  1. GLUCOPHAGE XR [Suspect]
     Dates: start: 20051001
  2. GLUCOVANCE [Suspect]
  3. ADVAIR DISKUS 100/50 [Concomitant]
  4. BETAGAN [Concomitant]
  5. FLONASE [Concomitant]
  6. NEXIUM [Concomitant]
  7. LIPITOR [Concomitant]
  8. ASPIRIN [Concomitant]
  9. ALTACE [Concomitant]
  10. ONE-A-DAY [Concomitant]

REACTIONS (1)
  - BLOOD GLUCOSE DECREASED [None]
